FAERS Safety Report 6402887-X (Version None)
Quarter: 2009Q4

REPORT INFORMATION
  Report Type: 
  Country: None (occurrence: None)
  Receive Date: 20091014
  Receipt Date: 20091014
  Transmission Date: 20100525
  Serious: Yes (Hospitalization)
  Sender: FDA-Public Use
  Company Number: None

PATIENT
  Sex: Male
  Weight: 89 kg

DRUGS (3)
  1. CALCIUM CARBONATE [Suspect]
     Dosage: 1300 MG
  2. VITAMIN D [Suspect]
     Dosage: 800 MG
  3. ZOMETA [Suspect]
     Dosage: 4 MG

REACTIONS (2)
  - NEPHROLITHIASIS [None]
  - PENILE PAIN [None]
